FAERS Safety Report 23330774 (Version 1)
Quarter: 2023Q4

REPORT INFORMATION
  Report Type: Spontaneous
  Country: US (occurrence: None)
  Receive Date: 20231221
  Receipt Date: 20231221
  Transmission Date: 20240109
  Serious: Yes (Other)
  Sender: FDA-Public Use
  Company Number: None

PATIENT
  Age: 4 Month
  Sex: Female
  Weight: 53.52 kg

DRUGS (4)
  1. NEXPLANON [Suspect]
     Active Substance: ETONOGESTREL
  2. NITROFURANTOIN [Suspect]
     Active Substance: NITROFURANTOIN
  3. NITROFURANTOIN [Concomitant]
     Active Substance: NITROFURANTOIN
  4. ADVIL [Concomitant]
     Active Substance: IBUPROFEN

REACTIONS (4)
  - Implant site pain [None]
  - Body temperature abnormal [None]
  - Implant site mass [None]
  - Implant site pruritus [None]

NARRATIVE: CASE EVENT DATE: 20231221
